FAERS Safety Report 20731849 (Version 1)
Quarter: 2022Q2

REPORT INFORMATION
  Report Type: Spontaneous
  Country: PK (occurrence: PK)
  Receive Date: 20220420
  Receipt Date: 20220420
  Transmission Date: 20220721
  Serious: Yes (Death, Other)
  Sender: FDA-Public Use
  Company Number: PK-SA-SAC20220404001315

PATIENT
  Age: 3 Year
  Sex: Male

DRUGS (6)
  1. IMIGLUCERASE [Suspect]
     Active Substance: IMIGLUCERASE
     Indication: Gaucher^s disease
     Dosage: 36 IU/KG, QM
     Dates: start: 20210305
  2. CEFTRIAXONE [Concomitant]
     Active Substance: CEFTRIAXONE
  3. AMPICLOX [AMPICILLIN;CLOXACILLIN] [Concomitant]
  4. RISEK [OMEPRAZOLE] [Concomitant]
  5. IPRATROPIUM BROMIDE [Concomitant]
     Active Substance: IPRATROPIUM BROMIDE
  6. CLENIL [NITROPRUSSIDE SODIUM] [Concomitant]

REACTIONS (1)
  - Pneumonia [Fatal]
